FAERS Safety Report 6338789-7 (Version None)
Quarter: 2009Q3

REPORT INFORMATION
  Report Type: 
  Country: None (occurrence: None)
  Receive Date: 20090903
  Receipt Date: 20090821
  Transmission Date: 20100115
  Serious: Yes (Hospitalization)
  Sender: FDA-Public Use
  Company Number: FR-JNJFOC-20090900824

PATIENT
  Sex: Female

DRUGS (6)
  1. IXPRIM [Suspect]
     Indication: DRUG USE FOR UNKNOWN INDICATION
     Route: 048
     Dates: start: 20090311, end: 20090319
  2. PROGRAF [Suspect]
     Indication: PROPHYLAXIS AGAINST TRANSPLANT REJECTION
     Route: 048
  3. RAPAMUNE [Suspect]
     Indication: PROPHYLAXIS AGAINST TRANSPLANT REJECTION
     Route: 048
  4. CELLCEPT [Concomitant]
     Route: 065
  5. INEXIUM [Concomitant]
     Route: 065
  6. MOPRAL [Concomitant]
     Route: 065

REACTIONS (1)
  - AGRANULOCYTOSIS [None]
